FAERS Safety Report 7833241-1 (Version None)
Quarter: 2011Q4

REPORT INFORMATION
  Report Type: 
  Country: None (occurrence: None)
  Receive Date: 20111024
  Receipt Date: 20111018
  Transmission Date: 20120403
  Serious: Yes (Death)
  Sender: FDA-Public Use
  Company Number: JP-PFIZER INC-2011211375

PATIENT
  Age: 98 Year
  Sex: Female

DRUGS (2)
  1. VFEND [Suspect]
     Indication: PULMONARY MYCOSIS
     Dosage: 800 MG/DAY
     Route: 041
     Dates: start: 20110904, end: 20110904
  2. VFEND [Suspect]
     Dosage: 400 MG/DAY
     Route: 041
     Dates: start: 20110905, end: 20110908

REACTIONS (3)
  - AMMONIA INCREASED [None]
  - DEATH [None]
  - HEPATIC FUNCTION ABNORMAL [None]
